FAERS Safety Report 8186855-6 (Version None)
Quarter: 2012Q1

REPORT INFORMATION
  Report Type: 
  Country: None (occurrence: None)
  Receive Date: 20120301
  Receipt Date: 20120223
  Transmission Date: 20120608
  Serious: Yes (Death)
  Sender: FDA-Public Use
  Company Number: MY-1190675

PATIENT
  Age: 28 Day
  Sex: Female
  Weight: 1.2 kg

DRUGS (5)
  1. PHENYLEPHRINE HCL [Suspect]
     Indication: RETINOPATHY OF PREMATURITY
     Dosage: (1 GTT OU BEFORE PROCEDURE OPHTHALMIC)
     Route: 047
  2. PHENYLEPHRINE HCL [Suspect]
     Indication: RETINOPATHY OF PREMATURITY
     Dosage: (1 GTT OU BEFORE PROCEDURE OPHTHALMIC)
     Route: 047
     Dates: start: 20110117, end: 20110117
  3. METOCLOPRAMIDE [Concomitant]
  4. SODIUM PHOSPHATE [Concomitant]
  5. URSODIOL [Concomitant]

REACTIONS (1)
  - NECROTISING ENTEROCOLITIS NEONATAL [None]
